FAERS Safety Report 4975445-1 (Version None)
Quarter: 2006Q2

REPORT INFORMATION
  Report Type: 
  Country: None (occurrence: None)
  Receive Date: 20060418
  Receipt Date: 20051024
  Transmission Date: 20061013
  Serious: Yes (Death, Hospitalization)
  Sender: FDA-Public Use
  Company Number: US-MERCK-0510USA08969

PATIENT
  Age: 60 Year
  Sex: Male
  Weight: 89 kg

DRUGS (2)
  1. VIOXX [Suspect]
     Route: 048
     Dates: start: 20010401, end: 20021024
  2. VIOXX [Suspect]
     Route: 048
     Dates: start: 20010401, end: 20021024

REACTIONS (23)
  - ADHESION [None]
  - ARTERIOSCLEROSIS [None]
  - ARTHRALGIA [None]
  - CARDIOMEGALY [None]
  - CHOLELITHIASIS [None]
  - CORONARY ARTERY DISEASE [None]
  - COUGH [None]
  - DILATATION VENTRICULAR [None]
  - DYSPEPSIA [None]
  - DYSPNOEA [None]
  - FATIGUE [None]
  - HEPATOMEGALY [None]
  - HYPERTENSION [None]
  - JOINT STIFFNESS [None]
  - MYOCARDIAL INFARCTION [None]
  - NASAL CONGESTION [None]
  - OVERDOSE [None]
  - PAIN IN EXTREMITY [None]
  - PULMONARY CONGESTION [None]
  - PULMONARY OEDEMA [None]
  - SKIN PAPILLOMA [None]
  - SPLENOMEGALY [None]
  - VENTRICULAR HYPERTROPHY [None]
